FAERS Safety Report 13561608 (Version 2)
Quarter: 2017Q2

REPORT INFORMATION
  Report Type: Report from Study
  Country: US (occurrence: US)
  Receive Date: 20170518
  Receipt Date: 20170614
  Transmission Date: 20170830
  Serious: Yes (Death, Other)
  Sender: FDA-Public Use
  Company Number: US-GILEAD-2017-0273452

PATIENT
  Age: 74 Year
  Sex: Female

DRUGS (5)
  1. SILDENAFIL. [Concomitant]
     Active Substance: SILDENAFIL
  2. CLOPIDOGREL [Concomitant]
     Active Substance: CLOPIDOGREL BISULFATE
  3. CARDIZEM [Concomitant]
     Active Substance: DILTIAZEM HYDROCHLORIDE
  4. FOSRENOL [Concomitant]
     Active Substance: LANTHANUM CARBONATE
  5. AMBRISENTAN [Suspect]
     Active Substance: AMBRISENTAN
     Indication: PULMONARY HYPERTENSION
     Dosage: 5 MG, UNK
     Route: 065

REACTIONS (1)
  - Cardiac failure [Fatal]
